FAERS Safety Report 25029890 (Version 2)
Quarter: 2025Q3

REPORT INFORMATION
  Report Type: Spontaneous
  Country: CN (occurrence: CN)
  Receive Date: 20250303
  Receipt Date: 20250803
  Transmission Date: 20251021
  Serious: Yes (Other)
  Sender: ALEXION PHARMACEUTICALS
  Company Number: CN-ASTRAZENECA-202502CHN020598CN

PATIENT
  Age: 39 Year
  Sex: Female

DRUGS (4)
  1. FASLODEX [Suspect]
     Active Substance: FULVESTRANT
     Indication: Neoplasm
     Dosage: 0.5 GRAM, QD
     Dates: start: 20241226, end: 20241226
  2. FASLODEX [Suspect]
     Active Substance: FULVESTRANT
  3. DENOSUMAB [Suspect]
     Active Substance: DENOSUMAB
     Indication: Neoplasm
     Dosage: 120 MILLIGRAM, QD
     Dates: start: 20241226, end: 20241226
  4. GOSERELIN [Suspect]
     Active Substance: GOSERELIN
     Indication: Neoplasm
     Dosage: 3.6 MILLIGRAM, QD
     Dates: start: 20241226, end: 20241226

REACTIONS (1)
  - Myelosuppression [Recovering/Resolving]

NARRATIVE: CASE EVENT DATE: 20250117
